FAERS Safety Report 10015267 (Version 2)
Quarter: 2014Q2

REPORT INFORMATION
  Report Type: Spontaneous
  Country: US (occurrence: US)
  Receive Date: 20140317
  Receipt Date: 20140402
  Transmission Date: 20141212
  Serious: No
  Sender: FDA-Public Use
  Company Number: US-PFIZER INC-2014074932

PATIENT
  Age: 53 Year
  Sex: Female

DRUGS (2)
  1. EFFEXOR [Suspect]
     Dosage: UNK
     Route: 048
  2. PREDNISONE [Suspect]
     Dosage: UNK
     Route: 048

REACTIONS (2)
  - Drug hypersensitivity [Unknown]
  - Palpitations [Recovered/Resolved]
